FAERS Safety Report 4405265-8 (Version None)
Quarter: 2004Q3

REPORT INFORMATION
  Report Type: 
  Country: None (occurrence: None)
  Receive Date: 20040716
  Receipt Date: 20040706
  Transmission Date: 20050211
  Serious: Yes (Hospitalization, Other)
  Sender: FDA-Public Use
  Company Number: 2004033211

PATIENT
  Age: 58 Year
  Sex: Male
  Weight: 74.8435 kg

DRUGS (3)
  1. NEURONTIN [Suspect]
     Indication: BIPOLAR DISORDER
     Dosage: 900 MG (300 MG, 3 IN 1 D), ORAL
     Route: 048
     Dates: start: 20000501, end: 20030101
  2. TRAZODONE HCL [Concomitant]
  3. ANTIHYPERENSIVES (ANTIHYPERTENSIVES) [Concomitant]

REACTIONS (12)
  - AGGRESSION [None]
  - ALCOHOL USE [None]
  - ANOREXIA [None]
  - ASOCIAL BEHAVIOUR [None]
  - CATATONIA [None]
  - DEPRESSION [None]
  - DRUG INTOLERANCE [None]
  - EATING DISORDER [None]
  - PARANOIA [None]
  - PSYCHOTIC DISORDER [None]
  - THINKING ABNORMAL [None]
  - WEIGHT DECREASED [None]
